FAERS Safety Report 6690006-4 (Version None)
Quarter: 2010Q2

REPORT INFORMATION
  Report Type: 
  Country: None (occurrence: None)
  Receive Date: 20100421
  Receipt Date: 20100407
  Transmission Date: 20101027
  Serious: Yes (Other)
  Sender: FDA-Public Use
  Company Number: PHHY2010GB19037

PATIENT
  Sex: Male

DRUGS (10)
  1. CLOZARIL [Suspect]
     Indication: SCHIZOPHRENIA
     Dosage: UNK
     Dates: start: 19980928
  2. CLOZARIL [Suspect]
     Dosage: 162.5 MG PER DAY
  3. METFORMIN HCL [Concomitant]
     Indication: TYPE 2 DIABETES MELLITUS
     Dosage: 2 G, UNK
     Route: 048
  4. MAXEDA [Concomitant]
     Indication: PSYCHOTIC DISORDER
     Dosage: 4
     Route: 048
  5. SIMVASTATIN [Concomitant]
     Indication: LIPIDS INCREASED
     Dosage: 80 MG, UNK
     Route: 048
  6. FERROUS SULFATE TAB [Concomitant]
     Indication: HAEMOGLOBIN DECREASED
     Dosage: 200 MG, UNK
     Route: 048
  7. GLICLAZIDE [Concomitant]
     Indication: TYPE 2 DIABETES MELLITUS
     Dosage: 320 MG, UNK
     Route: 048
  8. LANSOPRAZOLE [Concomitant]
     Indication: DYSPEPSIA
     Dosage: 30 MG, UNK
     Route: 048
  9. ASPIRIN [Concomitant]
     Indication: LIPIDS INCREASED
     Dosage: 75 MG, UNK
     Route: 048
  10. SERETIDE [Concomitant]
     Indication: DEPRESSION
     Dosage: 150 MG, UNK
     Route: 048

REACTIONS (3)
  - BACK PAIN [None]
  - KIDNEY INFECTION [None]
  - VOMITING [None]
